FAERS Safety Report 7602071-8 (Version None)
Quarter: 2011Q3

REPORT INFORMATION
  Report Type: 
  Country: None (occurrence: None)
  Receive Date: 20110711
  Receipt Date: 20110630
  Transmission Date: 20111222
  Serious: Yes (Other)
  Sender: FDA-Public Use
  Company Number: FR-ASTRAZENECA-2011SE01750

PATIENT
  Age: 68 Year
  Sex: Female
  Weight: 95 kg

DRUGS (4)
  1. ATENOLOL [Suspect]
     Indication: HYPERTENSION
     Dosage: 1 DF DAILY
     Route: 048
     Dates: start: 20070101
  2. MEDIATOR [Suspect]
     Indication: CENTRAL OBESITY
     Route: 048
     Dates: start: 20020101, end: 20090101
  3. CRESTOR [Suspect]
     Indication: HYPERCHOLESTEROLAEMIA
     Route: 048
     Dates: start: 20040101
  4. COTRIATEC [Suspect]
     Indication: HYPERTENSION
     Route: 048
     Dates: start: 20070101

REACTIONS (5)
  - AORTIC VALVE INCOMPETENCE [None]
  - ARRHYTHMIA [None]
  - MALAISE [None]
  - BRADYCARDIA [None]
  - DIZZINESS [None]
